FAERS Safety Report 14312592 (Version 9)
Quarter: 2018Q2

REPORT INFORMATION
  Report Type: Spontaneous
  Country: US (occurrence: US)
  Receive Date: 20171221
  Receipt Date: 20180608
  Transmission Date: 20180711
  Serious: Yes (Other)
  Sender: FDA-Public Use
  Company Number: US-PFIZER INC-2017542548

PATIENT
  Age: 65 Year
  Sex: Female

DRUGS (3)
  1. IBRANCE [Suspect]
     Active Substance: PALBOCICLIB
     Dosage: 100 MG, UNK
  2. IBRANCE [Suspect]
     Active Substance: PALBOCICLIB
     Dosage: 125 MG, UNK
  3. LETROZOLE. [Suspect]
     Active Substance: LETROZOLE
     Dosage: UNK

REACTIONS (10)
  - Full blood count decreased [Recovering/Resolving]
  - Neuropathy peripheral [Unknown]
  - Food craving [Unknown]
  - Neoplasm progression [Unknown]
  - White blood cell count decreased [Recovering/Resolving]
  - Affect lability [Unknown]
  - Musculoskeletal chest pain [Unknown]
  - Fatigue [Not Recovered/Not Resolved]
  - Middle insomnia [Unknown]
  - Appetite disorder [Unknown]
